FAERS Safety Report 10091170 (Version 2)
Quarter: 2014Q2

REPORT INFORMATION
  Report Type: Spontaneous
  Country: US (occurrence: US)
  Receive Date: 20140421
  Receipt Date: 20140421
  Transmission Date: 20141212
  Serious: No
  Sender: FDA-Public Use
  Company Number: US-GILEAD-2012-0060709

PATIENT
  Age: 49 Year
  Sex: Female

DRUGS (2)
  1. LETAIRIS [Suspect]
     Indication: PULMONARY HYPERTENSION
     Dosage: 5 MG, UNK
     Route: 048
     Dates: start: 20120810
  2. LETAIRIS [Suspect]
     Indication: DRUG ABUSE

REACTIONS (4)
  - Ear pain [Unknown]
  - Epistaxis [Unknown]
  - Nasal congestion [Unknown]
  - Flushing [Unknown]
